FAERS Safety Report 18954480 (Version 1)
Quarter: 2021Q1

REPORT INFORMATION
  Report Type: Spontaneous
  Country: US (occurrence: US)
  Receive Date: 20210301
  Receipt Date: 20210301
  Transmission Date: 20210420
  Serious: Yes (Other)
  Sender: FDA-Public Use
  Company Number: US-GW PHARMA-202102USGW00650

PATIENT

DRUGS (2)
  1. EPIDIOLEX [Suspect]
     Active Substance: CANNABIDIOL
     Indication: EPILEPSY
     Dosage: 23.5 MG/KG/DAY 480 MILLIGRAM, BID (580MG BID, DOSE INCREASED, NOT YET STERTED)
     Route: 048
  2. EPIDIOLEX [Suspect]
     Active Substance: CANNABIDIOL
     Dosage: (DOSE NOT STARTED) 28.4 MG/KG/DAY 580 MILLIGRAM, BID (580MG BID, DOSE INCREASED, NOT YET STERTED)
     Route: 048

REACTIONS (2)
  - Seizure [Not Recovered/Not Resolved]
  - Prescribed overdose [Unknown]
